FAERS Safety Report 6287468-3 (Version None)
Quarter: 2009Q3

REPORT INFORMATION
  Report Type: 
  Country: None (occurrence: None)
  Receive Date: 20090727
  Receipt Date: 20090716
  Transmission Date: 20100115
  Serious: Yes (Hospitalization, Other)
  Sender: FDA-Public Use
  Company Number: 2009SP015864

PATIENT
  Age: 33 Year
  Sex: Female

DRUGS (7)
  1. BETAMETHASONE [Suspect]
     Indication: DRUG USE FOR UNKNOWN INDICATION
     Dates: start: 20080901, end: 20080901
  2. KALETRA [Suspect]
     Indication: HIV INFECTION
     Dosage: QID
     Dates: start: 20080603, end: 20081024
  3. COMBIVIR [Suspect]
     Indication: HIV INFECTION
     Dosage: BID
     Dates: start: 20080603, end: 20081024
  4. ZITHROMAX [Suspect]
     Indication: DRUG USE FOR UNKNOWN INDICATION
     Dosage: 250 MG;TID
     Dates: start: 20080901, end: 20080901
  5. AUGMENTIN [Concomitant]
     Indication: DRUG USE FOR UNKNOWN INDICATION
     Dosage: 625 MG;TID
     Dates: start: 20080901, end: 20080901
  6. ISOTRETINOIN [Suspect]
     Indication: DRUG USE FOR UNKNOWN INDICATION
     Dosage: QD
     Dates: end: 20080130
  7. MAGNESIOCARD [Concomitant]

REACTIONS (5)
  - CAESAREAN SECTION [None]
  - DRUG EXPOSURE BEFORE PREGNANCY [None]
  - HIV INFECTION [None]
  - METRORRHAGIA [None]
  - PREMATURE LABOUR [None]
